FAERS Safety Report 15468966 (Version 3)
Quarter: 2020Q2

REPORT INFORMATION
  Report Type: Report from Study
  Country: None (occurrence: US)
  Receive Date: 20181005
  Receipt Date: 20200508
  Transmission Date: 20200713
  Serious: Yes (Hospitalization, Other)
  Sender: FDA-Public Use
  Company Number: US-ABBVIE-18K-163-2419589-00

PATIENT
  Sex: Female
  Weight: 83.54 kg

DRUGS (9)
  1. LANTUS [Concomitant]
     Active Substance: INSULIN GLARGINE
     Indication: DIABETES MELLITUS
  2. LISINOPRIL. [Concomitant]
     Active Substance: LISINOPRIL
     Indication: HYPERTENSION
  3. HUMIRA [Suspect]
     Active Substance: ADALIMUMAB
     Indication: UVEITIS
     Route: 058
     Dates: end: 201807
  4. AMARYL [Concomitant]
     Active Substance: GLIMEPIRIDE
     Indication: DIABETES MELLITUS
  5. ALLOPURINOL. [Concomitant]
     Active Substance: ALLOPURINOL
     Indication: GOUT
  6. GLIMEPIRIDE. [Concomitant]
     Active Substance: GLIMEPIRIDE
     Indication: DIABETES MELLITUS
  7. TIMOLOL. [Concomitant]
     Active Substance: TIMOLOL
     Indication: EYE DISORDER
  8. PLAVIX [Concomitant]
     Active Substance: CLOPIDOGREL BISULFATE
     Indication: CORONARY ARTERY DISEASE
  9. PREDNISONE. [Concomitant]
     Active Substance: PREDNISONE
     Indication: EYE DISORDER

REACTIONS (8)
  - Respiratory symptom [Unknown]
  - Cardiac failure congestive [Unknown]
  - Immunosuppression [Not Recovered/Not Resolved]
  - Renal failure [Not Recovered/Not Resolved]
  - Body temperature increased [Unknown]
  - Pneumonia [Not Recovered/Not Resolved]
  - Respiratory tract congestion [Recovered/Resolved]
  - Sepsis [Unknown]

NARRATIVE: CASE EVENT DATE: 2018
